FAERS Safety Report 12228552 (Version 2)
Quarter: 2016Q2

REPORT INFORMATION
  Report Type: Spontaneous
  Country: US (occurrence: US)
  Receive Date: 20160401
  Receipt Date: 20160418
  Transmission Date: 20160815
  Serious: No
  Sender: FDA-Public Use
  Company Number: US-PFIZER INC-2016175420

PATIENT
  Age: 52 Year
  Sex: Male
  Weight: 77 kg

DRUGS (16)
  1. FOLIC ACID. [Concomitant]
     Active Substance: FOLIC ACID
     Dosage: UNK
  2. FISH OIL [Concomitant]
     Active Substance: FISH OIL
     Dosage: UNK
  3. LISINOPRIL. [Concomitant]
     Active Substance: LISINOPRIL
     Dosage: UNK
  4. SUTENT [Suspect]
     Active Substance: SUNITINIB MALATE
     Indication: METASTATIC RENAL CELL CARCINOMA
     Dosage: 50 MG, CYCLIC (28 DAYS ON/14 DAYS OFF)
     Dates: start: 20160304
  5. ZOFRAN [Concomitant]
     Active Substance: ONDANSETRON HYDROCHLORIDE
  6. PROMETHAZINE [Concomitant]
     Active Substance: PROMETHAZINE\PROMETHAZINE HYDROCHLORIDE
     Dosage: UNK
  7. VITAMIN C [Concomitant]
     Active Substance: ASCORBIC ACID
     Dosage: UNK
  8. DEXAMETHASONE. [Concomitant]
     Active Substance: DEXAMETHASONE
     Dosage: UNK
  9. NEXIUM [Concomitant]
     Active Substance: ESOMEPRAZOLE MAGNESIUM
     Dosage: UNK
  10. LIPITOR [Concomitant]
     Active Substance: ATORVASTATIN CALCIUM
     Dosage: UNK
  11. BABY ASPIRIN [Concomitant]
     Active Substance: ASPIRIN
     Dosage: UNK
  12. IMODIUM [Concomitant]
     Active Substance: LOPERAMIDE HYDROCHLORIDE
     Dosage: UNK
  13. JANUMET [Concomitant]
     Active Substance: METFORMIN HYDROCHLORIDE\SITAGLIPTIN PHOSPHATE
     Dosage: UNK
  14. METOPROLOL. [Concomitant]
     Active Substance: METOPROLOL
     Dosage: UNK
  15. SUTENT [Suspect]
     Active Substance: SUNITINIB MALATE
     Indication: RENAL CELL CARCINOMA
  16. DULCOLAX NOS [Concomitant]
     Active Substance: BISACODYL OR DOCUSATE SODIUM

REACTIONS (24)
  - Metastatic renal cell carcinoma [Unknown]
  - Vomiting [Unknown]
  - Dyspepsia [Unknown]
  - Insomnia [Unknown]
  - Alopecia [Unknown]
  - Asthenia [Unknown]
  - Amnesia [Unknown]
  - Malaise [Unknown]
  - Depressed mood [Unknown]
  - Ageusia [Unknown]
  - Weight decreased [Unknown]
  - Headache [Unknown]
  - Visual field defect [Unknown]
  - Disease progression [Unknown]
  - Nausea [Unknown]
  - Dysgeusia [Unknown]
  - Gait disturbance [Unknown]
  - Pain [Unknown]
  - Palmar-plantar erythrodysaesthesia syndrome [Unknown]
  - Constipation [Unknown]
  - Rash [Unknown]
  - Activities of daily living impaired [Unknown]
  - Fatigue [Unknown]
  - Haemorrhoids [Unknown]

NARRATIVE: CASE EVENT DATE: 2016
